FAERS Safety Report 26189115 (Version 1)
Quarter: 2025Q4

REPORT INFORMATION
  Report Type: Spontaneous
  Country: US (occurrence: US)
  Receive Date: 20251223
  Receipt Date: 20251223
  Transmission Date: 20260118
  Serious: Yes (Hospitalization, Other)
  Sender: AMGEN
  Company Number: US-AMGEN-USASP2025195809

PATIENT

DRUGS (1)
  1. IVABRADINE [Suspect]
     Active Substance: IVABRADINE
     Indication: Arrhythmia
     Dosage: 0.051 MG/KG/DOSE, WITH A MEDIAN PEAK DOSE OF 0.07 MG/KG/DOSE
     Route: 065

REACTIONS (5)
  - Vomiting [Recovered/Resolved]
  - Electrocardiogram QT prolonged [Unknown]
  - Bradycardia [Unknown]
  - Drug interaction [Unknown]
  - Off label use [Unknown]
